FAERS Safety Report 9433397 (Version 1)
Quarter: 2013Q3

REPORT INFORMATION
  Report Type: Report from Study
  Country: GB (occurrence: GB)
  Receive Date: 20130731
  Receipt Date: 20130731
  Transmission Date: 20140515
  Serious: Yes (Other)
  Sender: FDA-Public Use
  Company Number: GB-B.I. PHARMACEUTICALS,INC./RIDGEFIELD-2013-BI-22723GD

PATIENT
  Age: 45 Year
  Sex: Male

DRUGS (2)
  1. PRAMIPEXOLE [Suspect]
     Indication: PARKINSON^S DISEASE
     Dosage: DAILY LEVODOPA EQUIVALENT (DOPAMINE AGONIST) = 200
  2. LEVODOPA [Suspect]
     Indication: PARKINSON^S DISEASE
     Dosage: DAILY LEVODOPA EQUIVALENT (L-DOPA) = 600

REACTIONS (3)
  - Hypersexuality [Unknown]
  - Impulse-control disorder [Unknown]
  - Dopamine dysregulation syndrome [Unknown]
